FAERS Safety Report 11488576 (Version 1)
Quarter: 2015Q3

REPORT INFORMATION
  Report Type: Spontaneous
  Country: US (occurrence: US)
  Receive Date: 20150910
  Receipt Date: 20150910
  Transmission Date: 20151125
  Serious: No
  Sender: FDA-Public Use
  Company Number: US-ROCHE-1533086

PATIENT
  Sex: Male

DRUGS (5)
  1. ANAGRELIDE [Concomitant]
     Active Substance: ANAGRELIDE
     Route: 065
  2. EFFIENT [Concomitant]
     Active Substance: PRASUGREL HYDROCHLORIDE
     Route: 065
  3. PEGASYS [Suspect]
     Active Substance: PEGINTERFERON ALFA-2A
     Indication: POLYCYTHAEMIA VERA
     Route: 058
     Dates: start: 20141115
  4. ASPIRIN. [Concomitant]
     Active Substance: ASPIRIN
     Route: 065
  5. INTRON A [Concomitant]
     Active Substance: INTERFERON ALFA-2B
     Route: 065

REACTIONS (1)
  - Dizziness [Unknown]
